FAERS Safety Report 4392334-4 (Version None)
Quarter: 2004Q3

REPORT INFORMATION
  Report Type: 
  Country: None (occurrence: None)
  Receive Date: 20040702
  Receipt Date: 20040303
  Transmission Date: 20050211
  Serious: Yes (Other)
  Sender: FDA-Public Use
  Company Number: 2004UW04022

PATIENT
  Age: 50 Year
  Sex: Female
  Weight: 95.709 kg

DRUGS (5)
  1. CRESTOR [Suspect]
     Indication: LOW DENSITY LIPOPROTEIN INCREASED
     Dosage: 10 MG QD PO
     Route: 048
  2. INSULIN PUMP [Concomitant]
  3. METFORMIN [Concomitant]
  4. VITAMIN D [Concomitant]
  5. MULTI-VITAMIN [Concomitant]

REACTIONS (2)
  - ANOREXIA [None]
  - BLOOD GLUCOSE INCREASED [None]
